FAERS Safety Report 8515323-4 (Version None)
Quarter: 2012Q3

REPORT INFORMATION
  Report Type: 
  Country: None (occurrence: None)
  Receive Date: 20120717
  Receipt Date: 20120706
  Transmission Date: 20120928
  Serious: Yes (Life-Threatening, Hospitalization)
  Sender: FDA-Public Use
  Company Number: FR-BRISTOL-MYERS SQUIBB COMPANY-16753063

PATIENT
  Age: 69 Year
  Sex: Female

DRUGS (12)
  1. PERINDOPRIL ERBUMINE [Concomitant]
  2. EFFEXOR [Concomitant]
  3. PREVISCAN [Concomitant]
  4. LASIX [Concomitant]
  5. METFORMIN HCL [Suspect]
  6. CRESTOR [Concomitant]
  7. MORPHINE SULFATE [Suspect]
     Indication: PAIN
     Route: 048
  8. NORDAZ [Concomitant]
  9. THERALENE [Concomitant]
  10. OXEOL [Concomitant]
  11. MORPHINE SULFATE [Suspect]
     Route: 048
  12. POTASSIUM CHLORIDE [Concomitant]

REACTIONS (9)
  - OEDEMA PERIPHERAL [None]
  - DILATATION VENTRICULAR [None]
  - MIOSIS [None]
  - PNEUMONIA [None]
  - LACTIC ACIDOSIS [None]
  - RESPIRATORY DISTRESS [None]
  - SOMNOLENCE [None]
  - OVERDOSE [None]
  - EJECTION FRACTION DECREASED [None]
